FAERS Safety Report 4398919-3 (Version None)
Quarter: 2004Q3

REPORT INFORMATION
  Report Type: 
  Country: None (occurrence: None)
  Receive Date: 20040712
  Receipt Date: 19961003
  Transmission Date: 20050211
  Serious: Yes (Life-Threatening, Hospitalization)
  Sender: FDA-Public Use
  Company Number: WAES 96100298

PATIENT
  Age: 4 Day
  Sex: Male

DRUGS (5)
  1. INDOCIN I.V. [Suspect]
     Indication: PATENT DUCTUS ARTERIOSUS
     Dosage: 0.30 MG/DAILY
     Route: 042
     Dates: start: 19960831, end: 19960901
  2. AMPICILLIN [Concomitant]
  3. ASSISTED VENTILATION [Concomitant]
  4. CEFOTAXIME SODIUM [Concomitant]
  5. SURFACTANT [Concomitant]

REACTIONS (3)
  - ABDOMINAL DISTENSION [None]
  - GASTRIC PERFORATION [None]
  - NEONATAL DISORDER [None]
